FAERS Safety Report 7372143-4 (Version None)
Quarter: 2011Q1

REPORT INFORMATION
  Report Type: 
  Country: None (occurrence: None)
  Receive Date: 20110324
  Receipt Date: 20110317
  Transmission Date: 20110831
  Serious: Yes (Hospitalization)
  Sender: FDA-Public Use
  Company Number: CA-ROCHE-766257

PATIENT
  Sex: Male

DRUGS (14)
  1. LYRICA [Concomitant]
  2. NEXIUM [Concomitant]
  3. TYLENOL NO 4 WITH CODEINE [Concomitant]
     Dosage: DRUG: TYLENOL NO. 4
  4. PREDNISONE [Concomitant]
  5. ARAVA [Concomitant]
  6. METHOTREXATE [Concomitant]
  7. TOCILIZUMAB [Suspect]
     Indication: RHEUMATOID ARTHRITIS
     Dosage: FORM: INFUSION
     Route: 042
     Dates: start: 20101012, end: 20110208
  8. ELTROXIN [Concomitant]
  9. TRAMADOL [Concomitant]
  10. FLOMAX [Concomitant]
  11. PRILOSEC [Concomitant]
  12. VOLTAREN [Concomitant]
  13. TYLENOL W/ CODEINE NO. 3 [Concomitant]
  14. CALCIUM [Concomitant]

REACTIONS (1)
  - RHEUMATOID VASCULITIS [None]
